FAERS Safety Report 6105391-1 (Version None)
Quarter: 2009Q1

REPORT INFORMATION
  Report Type: 
  Country: None (occurrence: None)
  Receive Date: 20090306
  Receipt Date: 20090220
  Transmission Date: 20090719
  Serious: Yes (Other)
  Sender: FDA-Public Use
  Company Number: IT-PFIZER INC-2009172795

PATIENT

DRUGS (4)
  1. LATANOPROST [Suspect]
  2. DIPIVEFRINE HYDROCHLORIDE [Concomitant]
  3. DICLOFENAC [Concomitant]
  4. ATROPINE [Concomitant]

REACTIONS (1)
  - INTRAOCULAR PRESSURE INCREASED [None]
